FAERS Safety Report 5017551-1 (Version None)
Quarter: 2006Q2

REPORT INFORMATION
  Report Type: 
  Country: None (occurrence: None)
  Receive Date: 20060525
  Receipt Date: 20060502
  Transmission Date: 20061013
  Serious: Yes (Other)
  Sender: FDA-Public Use
  Company Number: US200605000665

PATIENT
  Sex: Female

DRUGS (2)
  1. HUMATROPE [Suspect]
     Indication: GROWTH HORMONE DEFICIENCY
     Dosage: 0.5 MG DAILY (1/D)
     Dates: start: 20050101
  2. HUMATROPEN (HUMATROPEN) [Concomitant]

REACTIONS (2)
  - DIZZINESS [None]
  - HYPOTHALAMO-PITUITARY DISORDERS [None]
